FAERS Safety Report 4396789-0 (Version None)
Quarter: 2004Q3

REPORT INFORMATION
  Report Type: 
  Country: None (occurrence: None)
  Receive Date: 20040713
  Receipt Date: 20040713
  Transmission Date: 20050211
  Serious: Yes (Death)
  Sender: FDA-Public Use
  Company Number: None

PATIENT
  Sex: Female
  Weight: 106.02 kg

DRUGS (2)
  1. DAUNOMYCIN [Suspect]
     Indication: ACUTE LYMPHOCYTIC LEUKAEMIA
     Dosage: 60 MG ONCE INTRAVENOUS
     Route: 042
     Dates: start: 20040624, end: 20040624
  2. PEG L'ASPARAGINASE [Suspect]
     Indication: ACUTE LYMPHOCYTIC LEUKAEMIA
     Dosage: 50000 UNITS ONCE SUBCUTANEOUS
     Route: 058
     Dates: start: 20040625, end: 20040625

REACTIONS (9)
  - ACIDOSIS [None]
  - BLOOD CULTURE POSITIVE [None]
  - CARDIO-RESPIRATORY ARREST [None]
  - FALL [None]
  - HYPOTENSION [None]
  - NEUTROPENIA [None]
  - PAIN [None]
  - PSEUDOMONAS INFECTION [None]
  - PYREXIA [None]
